FAERS Safety Report 15844314 (Version 2)
Quarter: 2019Q1

REPORT INFORMATION
  Report Type: Report from Study
  Country: TR (occurrence: TR)
  Receive Date: 20190118
  Receipt Date: 20190312
  Transmission Date: 20190417
  Serious: Yes (Disabling, Other)
  Sender: FDA-Public Use
  Company Number: PHHY2019TR007236

PATIENT
  Age: 72 Year
  Sex: Female
  Weight: 52 kg

DRUGS (2)
  1. LEE011 [Suspect]
     Active Substance: RIBOCICLIB
     Dosage: UNK
     Route: 065
     Dates: start: 20190213
  2. LEE011 [Suspect]
     Active Substance: RIBOCICLIB
     Indication: BREAST CANCER STAGE IV
     Dosage: 600 MG, UNK
     Route: 048
     Dates: start: 20180226, end: 20190110

REACTIONS (3)
  - Dyspnoea [Unknown]
  - Pneumonitis [Recovered/Resolved with Sequelae]
  - Lung infection [Recovering/Resolving]

NARRATIVE: CASE EVENT DATE: 20190104
